FAERS Safety Report 8765158 (Version 2)
Quarter: 2013Q4

REPORT INFORMATION
  Report Type: Spontaneous
  Country: FR (occurrence: FR)
  Receive Date: 20120903
  Receipt Date: 20131031
  Transmission Date: 20140711
  Serious: Yes (Life-Threatening, Hospitalization)
  Sender: FDA-Public Use
  Company Number: FR-009507513-1208FRA009328

PATIENT
  Age: 62 Year
  Sex: Male

DRUGS (4)
  1. ESMERON [Suspect]
     Indication: INDUCTION OF ANAESTHESIA
     Dosage: UNK
     Route: 042
     Dates: start: 20120509, end: 20120509
  2. MIDAZOLAM AGUETTANT [Concomitant]
     Indication: INDUCTION OF ANAESTHESIA
     Dosage: UNK
     Route: 042
     Dates: start: 20120509, end: 20120509
  3. REMIFENTANIL MILAN [Concomitant]
     Indication: INDUCTION OF ANAESTHESIA
     Dosage: UNK
     Dates: start: 20120509, end: 20120509
  4. ETOMIDATE LIPURO [Concomitant]
     Indication: INDUCTION OF ANAESTHESIA
     Dosage: UNK, ONCE
     Route: 042
     Dates: start: 20120509, end: 20120509

REACTIONS (1)
  - Type IV hypersensitivity reaction [Recovered/Resolved]
